FAERS Safety Report 18508095 (Version 2)
Quarter: 2020Q4

REPORT INFORMATION
  Report Type: Spontaneous
  Country: DE (occurrence: DE)
  Receive Date: 20201116
  Receipt Date: 20201203
  Transmission Date: 20210114
  Serious: Yes (Hospitalization, Other)
  Sender: FDA-Public Use
  Company Number: DE-ALLERGAN-2044217US

PATIENT
  Sex: Male

DRUGS (4)
  1. CARIPRAZINE HCL - BP [Suspect]
     Active Substance: CARIPRAZINE HYDROCHLORIDE
     Dosage: 1.5 MG, QD
     Route: 048
     Dates: start: 20200724, end: 20200730
  2. CARIPRAZINE HCL - BP [Suspect]
     Active Substance: CARIPRAZINE HYDROCHLORIDE
     Indication: SCHIZOPHRENIA
     Dosage: 4.5 MG, QAM
     Route: 048
     Dates: start: 20200805
  3. CARIPRAZINE HCL - BP [Suspect]
     Active Substance: CARIPRAZINE HYDROCHLORIDE
     Dosage: 3 MG, QD
     Route: 048
     Dates: start: 20200731, end: 20200804
  4. PIPAMPERONE [Concomitant]
     Active Substance: PIPAMPERONE
     Indication: SLEEP DISORDER
     Dosage: 40 MG, QD
     Route: 065
     Dates: start: 20200724, end: 20200811

REACTIONS (8)
  - Cerebral atrophy [Unknown]
  - Tension [Recovering/Resolving]
  - Abnormal behaviour [Recovering/Resolving]
  - Restlessness [Recovering/Resolving]
  - Delusion [Recovered/Resolved]
  - Cognitive disorder [Unknown]
  - Insomnia [Recovering/Resolving]
  - Hallucination [Recovered/Resolved]

NARRATIVE: CASE EVENT DATE: 20200805
